FAERS Safety Report 23090082 (Version 1)
Quarter: 2023Q4

REPORT INFORMATION
  Report Type: Spontaneous
  Country: CH (occurrence: CH)
  Receive Date: 20231020
  Receipt Date: 20231020
  Transmission Date: 20240109
  Serious: Yes (Other)
  Sender: FDA-Public Use
  Company Number: CH-TEVA-2023-CH-2935884

PATIENT

DRUGS (2)
  1. AZITHROMYCIN [Suspect]
     Active Substance: AZITHROMYCIN
     Indication: Antibiotic prophylaxis
     Route: 065
  2. IMMUNOGLOBULINS [Concomitant]
     Indication: Product used for unknown indication
     Route: 042

REACTIONS (2)
  - Pseudomonas infection [Unknown]
  - Infection [Unknown]
